FAERS Safety Report 11679678 (Version 3)
Quarter: 2015Q4

REPORT INFORMATION
  Report Type: Spontaneous
  Country: US (occurrence: US)
  Receive Date: 20151027
  Receipt Date: 20151110
  Transmission Date: 20160304
  Serious: Yes (Hospitalization)
  Sender: FDA-Public Use
  Company Number: US-ELI_LILLY_AND_COMPANY-US201005006433

PATIENT
  Age: 90 Year
  Sex: Female

DRUGS (7)
  1. FORTEO [Suspect]
     Active Substance: TERIPARATIDE
     Dosage: 20 UG, QD
     Route: 058
  2. FORTEO [Suspect]
     Active Substance: TERIPARATIDE
     Dosage: 20 UG, QD
     Route: 058
  3. FORTEO [Suspect]
     Active Substance: TERIPARATIDE
     Dosage: 20 UG, QD
     Route: 058
  4. FORTEO [Suspect]
     Active Substance: TERIPARATIDE
     Dosage: 20 UG, QD
     Route: 058
  5. FORTEO [Suspect]
     Active Substance: TERIPARATIDE
     Dosage: 20 UG, QD
     Route: 058
  6. ANTIHYPERTENSIVES [Concomitant]
     Active Substance: UNSPECIFIED INGREDIENT
     Indication: HYPERTENSION
  7. FORTEO [Suspect]
     Active Substance: TERIPARATIDE
     Indication: OSTEOPOROSIS
     Dosage: 20 UG, QD
     Route: 058
     Dates: start: 20100204

REACTIONS (26)
  - Muscle disorder [Not Recovered/Not Resolved]
  - Bacterial infection [Unknown]
  - Limb discomfort [Not Recovered/Not Resolved]
  - Skin irritation [Unknown]
  - Movement disorder [Unknown]
  - Musculoskeletal pain [Unknown]
  - Fall [Unknown]
  - Hypoacusis [Unknown]
  - Dysphonia [Unknown]
  - Asthenia [Unknown]
  - Fluid retention [Unknown]
  - Feeling hot [Unknown]
  - Cataract operation [Unknown]
  - Pain in extremity [Unknown]
  - Rash [Recovering/Resolving]
  - Visual impairment [Unknown]
  - Hypertension [Unknown]
  - Vision blurred [Unknown]
  - Sleep disorder [Unknown]
  - Calcinosis [Unknown]
  - Tooth extraction [Unknown]
  - Inflammation [Unknown]
  - Bone disorder [Unknown]
  - Eye laser surgery [Unknown]
  - Glaucoma [Unknown]
  - Arthropathy [Not Recovered/Not Resolved]

NARRATIVE: CASE EVENT DATE: 20110110
